FAERS Safety Report 14500032 (Version 1)
Quarter: 2018Q1

REPORT INFORMATION
  Report Type: Not Available
  Country: US (occurrence: US)
  Receive Date: 20180207
  Receipt Date: 20180207
  Transmission Date: 20180509
  Serious: No
  Sender: FDA-Public Use
  Company Number: US-FOUNDATIONCONSUMERHC-2017-US-013716

PATIENT
  Sex: Female

DRUGS (1)
  1. PLAN B ONE-STEP [Suspect]
     Active Substance: LEVONORGESTREL
     Route: 048
     Dates: start: 20171107, end: 20171107

REACTIONS (3)
  - Vaginal haemorrhage [Unknown]
  - Back pain [Unknown]
  - Breast tenderness [Unknown]

NARRATIVE: CASE EVENT DATE: 20171114
